FAERS Safety Report 14666483 (Version 1)
Quarter: 2018Q1

REPORT INFORMATION
  Report Type: Report from Study
  Country: CO (occurrence: CO)
  Receive Date: 20180321
  Receipt Date: 20180321
  Transmission Date: 20180509
  Serious: Yes (Hospitalization)
  Sender: FDA-Public Use
  Company Number: CO-UCBSA-2018011659

PATIENT
  Age: 18 Year
  Sex: Male
  Weight: 59 kg

DRUGS (2)
  1. LACOSAMIDE. [Suspect]
     Active Substance: LACOSAMIDE
     Indication: EPILEPSY
     Dosage: UNK
     Route: 048
     Dates: start: 20150213
  2. LACOSAMIDE. [Suspect]
     Active Substance: LACOSAMIDE
     Dosage: 300 MG, 3X/DAY (TID)
     Route: 048
     Dates: start: 201802

REACTIONS (3)
  - Overdose [Unknown]
  - Seizure [Recovered/Resolved]
  - Off label use [Unknown]

NARRATIVE: CASE EVENT DATE: 201802
